FAERS Safety Report 18259005 (Version 2)
Quarter: 2020Q4

REPORT INFORMATION
  Report Type: Spontaneous
  Country: JP (occurrence: JP)
  Receive Date: 20200911
  Receipt Date: 20201009
  Transmission Date: 20210113
  Serious: Yes (Other)
  Sender: FDA-Public Use
  Company Number: NVSC2020JP236908

PATIENT
  Age: 81 Year
  Sex: Male

DRUGS (2)
  1. RIVASTACH [Suspect]
     Active Substance: RIVASTIGMINE
     Indication: PRODUCT USED FOR UNKNOWN INDICATION
     Dosage: UNK (INCLUDING POULTICE)
     Route: 062
  2. RIVASTACH [Suspect]
     Active Substance: RIVASTIGMINE
     Indication: DEMENTIA ALZHEIMER^S TYPE

REACTIONS (1)
  - Delirium [Recovering/Resolving]
